FAERS Safety Report 12664090 (Version 1)
Quarter: 2016Q3

REPORT INFORMATION
  Report Type: Report from Study
  Country: NL (occurrence: NL)
  Receive Date: 20160818
  Receipt Date: 20160818
  Transmission Date: 20161109
  Serious: Yes (Death)
  Sender: FDA-Public Use
  Company Number: NL-ABBVIE-16K-114-1702619-00

PATIENT
  Age: 82 Year
  Sex: Female

DRUGS (1)
  1. DUODOPA [Suspect]
     Active Substance: CARBIDOPA\LEVODOPA
     Indication: PARKINSON^S DISEASE
     Dosage: MD: 7, CD: 5, ED: 2, CND: 3
     Route: 050
     Dates: start: 20080611, end: 201608

REACTIONS (1)
  - Death [Fatal]

NARRATIVE: CASE EVENT DATE: 201608
